FAERS Safety Report 6034591-4 (Version None)
Quarter: 2009Q1

REPORT INFORMATION
  Report Type: 
  Country: None (occurrence: None)
  Receive Date: 20090112
  Receipt Date: 20081231
  Transmission Date: 20090719
  Serious: Yes (Disabling, Other)
  Sender: FDA-Public Use
  Company Number: CA-MERCK-0809CAN00001

PATIENT
  Age: 54 Year
  Sex: Male

DRUGS (13)
  1. ISENTRESS [Suspect]
     Indication: HIV INFECTION
     Route: 048
     Dates: start: 20070620
  2. EFAVIRENZ [Suspect]
     Indication: HIV INFECTION
     Route: 065
     Dates: start: 20040101
  3. LAMIVUDINE [Concomitant]
     Indication: HIV INFECTION
     Route: 065
     Dates: start: 20040101
  4. LOPINAVIR AND RITONAVIR [Concomitant]
     Indication: HIV INFECTION
     Route: 065
     Dates: start: 20040101
  5. ATAZANAVIR SULFATE [Suspect]
     Indication: HIV INFECTION
     Route: 065
     Dates: start: 20040101
  6. ENFUVIRTIDE [Concomitant]
     Indication: HIV INFECTION
     Route: 065
     Dates: start: 20040101, end: 20070619
  7. BUPROPION HYDROCHLORIDE [Interacting]
     Indication: BIPOLAR DISORDER
     Route: 065
  8. CLONAZEPAM [Interacting]
     Indication: BIPOLAR DISORDER
     Route: 065
  9. QUETIAPINE FUMARATE [Interacting]
     Indication: BIPOLAR DISORDER
     Route: 065
  10. SERTRALINE HYDROCHLORIDE [Interacting]
     Indication: BIPOLAR DISORDER
     Route: 065
  11. VALPROIC ACID [Interacting]
     Indication: BIPOLAR DISORDER
     Route: 065
     Dates: end: 20070601
  12. VALPROIC ACID [Interacting]
     Route: 065
     Dates: start: 20070601
  13. ZOPICLONE [Interacting]
     Indication: BIPOLAR DISORDER
     Route: 065

REACTIONS (2)
  - DEPRESSION [None]
  - DRUG INTERACTION [None]
